FAERS Safety Report 9754366 (Version 1)
Quarter: 2013Q4

REPORT INFORMATION
  Report Type: Spontaneous
  Country: US (occurrence: US)
  Receive Date: 20131213
  Receipt Date: 20131213
  Transmission Date: 20140711
  Serious: Yes (Hospitalization)
  Sender: FDA-Public Use
  Company Number: US-ONYX-2013-1966

PATIENT
  Sex: Female

DRUGS (15)
  1. KYPROLIS [Suspect]
     Indication: PLASMA CELL MYELOMA
     Route: 042
     Dates: start: 20130417, end: 20130612
  2. COUMADIN [Concomitant]
     Indication: PRODUCT USED FOR UNKNOWN INDICATION
  3. SYNTHROID [Concomitant]
     Indication: PRODUCT USED FOR UNKNOWN INDICATION
  4. VALSARTAN [Concomitant]
     Indication: PRODUCT USED FOR UNKNOWN INDICATION
  5. COREG [Concomitant]
     Indication: PRODUCT USED FOR UNKNOWN INDICATION
  6. TESSALON [Concomitant]
     Indication: PRODUCT USED FOR UNKNOWN INDICATION
  7. PERLAX [Concomitant]
     Indication: PRODUCT USED FOR UNKNOWN INDICATION
  8. TRIMADONE [Concomitant]
     Indication: PRODUCT USED FOR UNKNOWN INDICATION
  9. ALBUTEROL/IPRATROPIUM [Concomitant]
     Indication: PRODUCT USED FOR UNKNOWN INDICATION
  10. PROTONIX [Concomitant]
     Indication: PRODUCT USED FOR UNKNOWN INDICATION
  11. NORCO [Concomitant]
     Indication: PRODUCT USED FOR UNKNOWN INDICATION
  12. PAXIL [Concomitant]
     Indication: PRODUCT USED FOR UNKNOWN INDICATION
  13. ATIVAN [Concomitant]
     Indication: PRODUCT USED FOR UNKNOWN INDICATION
  14. ZOTRAN [Concomitant]
     Indication: PRODUCT USED FOR UNKNOWN INDICATION
  15. ACYCLOVIR [Concomitant]
     Indication: PRODUCT USED FOR UNKNOWN INDICATION

REACTIONS (1)
  - Epistaxis [Recovered/Resolved]
